FAERS Safety Report 5289574-9 (Version None)
Quarter: 2007Q2

REPORT INFORMATION
  Report Type: 
  Country: None (occurrence: None)
  Receive Date: 20070406
  Receipt Date: 20070406
  Transmission Date: 20071010
  Serious: Yes (Life-Threatening, Hospitalization)
  Sender: FDA-Public Use
  Company Number: None

PATIENT
  Age: 21 Year
  Sex: Female

DRUGS (2)
  1. MIFEPREX [Suspect]
     Dosage: 200 MG ORAL
     Route: 048
     Dates: start: 20070316
  2. CYTOTEC [Suspect]
     Dosage: 800 MCG VAGINAL
     Route: 067
     Dates: start: 20070316

REACTIONS (3)
  - HAEMORRHAGE [None]
  - HYPOVOLAEMIC SHOCK [None]
  - LEUKOCYTOSIS [None]
